FAERS Safety Report 5161254-X (Version None)
Quarter: 2006Q4

REPORT INFORMATION
  Report Type: 
  Country: None (occurrence: None)
  Receive Date: 20061130
  Receipt Date: 20060915
  Transmission Date: 20070319
  Serious: Yes (Hospitalization, Other)
  Sender: FDA-Public Use
  Company Number: US-BRISTOL-MYERS SQUIBB COMPANY-13511274

PATIENT
  Sex: Male

DRUGS (4)
  1. ERBITUX [Suspect]
     Indication: COLORECTAL CANCER
     Route: 042
     Dates: start: 20060901
  2. DECADRON [Concomitant]
  3. TAGAMET [Concomitant]
     Route: 042
  4. BENADRYL [Concomitant]
     Route: 042

REACTIONS (1)
  - INFUSION RELATED REACTION [None]
